FAERS Safety Report 8476245 (Version 2)
Quarter: 2014Q2

REPORT INFORMATION
  Report Type: Spontaneous
  Country: US (occurrence: US)
  Receive Date: 20120326
  Receipt Date: 20140612
  Transmission Date: 20141212
  Serious: Yes (Other)
  Sender: FDA-Public Use
  Company Number: US-ROCHE-1022398

PATIENT
  Sex: Female
  Weight: 51.76 kg

DRUGS (1)
  1. ACCUTANE [Suspect]
     Indication: ACNE
     Route: 065
     Dates: start: 20011221, end: 20020806

REACTIONS (3)
  - Crohn^s disease [Unknown]
  - Colitis [Unknown]
  - Mental disorder [Unknown]
